FAERS Safety Report 6395025-3 (Version None)
Quarter: 2009Q4

REPORT INFORMATION
  Report Type: 
  Country: None (occurrence: None)
  Receive Date: 20091009
  Receipt Date: 20090928
  Transmission Date: 20100525
  Serious: Yes (Hospitalization, Other)
  Sender: FDA-Public Use
  Company Number: FR-PFIZER INC-2009227997

PATIENT
  Age: 59 Year

DRUGS (3)
  1. CELEBREX [Suspect]
     Indication: ARTHRALGIA
     Dosage: 200 MG, 1X/DAY
     Dates: start: 20090513, end: 20090518
  2. CELEBREX [Suspect]
     Indication: OSTEOARTHRITIS
  3. DOLIPRANE [Concomitant]
     Indication: OSTEOARTHRITIS
     Dosage: 3 OR 3 G PER DAY
     Route: 048

REACTIONS (2)
  - CARDIAC FAILURE [None]
  - CONGESTIVE CARDIOMYOPATHY [None]
